FAERS Safety Report 5641174-4 (Version None)
Quarter: 2008Q1

REPORT INFORMATION
  Report Type: 
  Country: None (occurrence: None)
  Receive Date: 20080227
  Receipt Date: 20070221
  Transmission Date: 20080703
  Serious: No
  Sender: FDA-Public Use
  Company Number: A0640228A

PATIENT
  Age: 42 Year
  Sex: Female

DRUGS (1)
  1. NICORETTE (MINT) [Suspect]
     Route: 002
     Dates: start: 20070118, end: 20070120

REACTIONS (4)
  - AGEUSIA [None]
  - EXPIRED DRUG ADMINISTERED [None]
  - ORAL DISCOMFORT [None]
  - TONGUE DISORDER [None]
